FAERS Safety Report 15456375 (Version 1)
Quarter: 2018Q4

REPORT INFORMATION
  Report Type: Report from Study
  Country: IN (occurrence: IN)
  Receive Date: 20181002
  Receipt Date: 20181002
  Transmission Date: 20190204
  Serious: Yes (Death)
  Sender: FDA-Public Use
  Company Number: PHHY2018IN114077

PATIENT
  Age: 49 Year
  Sex: Male

DRUGS (1)
  1. NEORAL [Suspect]
     Active Substance: CYCLOSPORINE
     Indication: RENAL TRANSPLANT
     Dosage: 75 MG, 50 MG
     Route: 048
     Dates: start: 20110519

REACTIONS (1)
  - Death [Fatal]

NARRATIVE: CASE EVENT DATE: 20180424
